FAERS Safety Report 8929051 (Version 2)
Quarter: 2013Q2

REPORT INFORMATION
  Report Type: Spontaneous
  Country: BR (occurrence: BR)
  Receive Date: 20121128
  Receipt Date: 20130613
  Transmission Date: 20140414
  Serious: Yes (Hospitalization, Other)
  Sender: FDA-Public Use
  Company Number: BR-BAYER-2012-122119

PATIENT
  Age: 29 Year
  Sex: Female
  Weight: 112 kg

DRUGS (1)
  1. MIRENA [Suspect]
     Indication: CONTRACEPTION
     Dosage: 20 ?G/D, CONT
     Route: 015
     Dates: start: 20110526, end: 20121113

REACTIONS (24)
  - Peripheral vascular disorder [None]
  - Pain in extremity [None]
  - Thrombosis [None]
  - Oedema peripheral [None]
  - Pain in extremity [None]
  - Amenorrhoea [Recovered/Resolved]
  - Weight increased [Not Recovered/Not Resolved]
  - Breast engorgement [Not Recovered/Not Resolved]
  - Mood altered [Not Recovered/Not Resolved]
  - Hormone level abnormal [Not Recovered/Not Resolved]
  - Premature menopause [Not Recovered/Not Resolved]
  - Hot flush [Not Recovered/Not Resolved]
  - Breast disorder female [Not Recovered/Not Resolved]
  - Breast pain [Not Recovered/Not Resolved]
  - Blood glucose increased [Not Recovered/Not Resolved]
  - Blood cholesterol increased [Not Recovered/Not Resolved]
  - Blood cortisol abnormal [Not Recovered/Not Resolved]
  - Stress [Not Recovered/Not Resolved]
  - Dyspnoea [Not Recovered/Not Resolved]
  - Fatigue [Not Recovered/Not Resolved]
  - Agitation [Not Recovered/Not Resolved]
  - Hypertension [Not Recovered/Not Resolved]
  - Genital haemorrhage [Not Recovered/Not Resolved]
  - Menorrhagia [None]
